FAERS Safety Report 7252962-5 (Version None)
Quarter: 2011Q1

REPORT INFORMATION
  Report Type: 
  Country: None (occurrence: None)
  Receive Date: 20110129
  Receipt Date: 20100322
  Transmission Date: 20110831
  Serious: No
  Sender: FDA-Public Use
  Company Number: US-ABBOTT-10P-163-0633903-00

PATIENT
  Sex: Male
  Weight: 90.8 kg

DRUGS (5)
  1. PREDNISONE [Concomitant]
     Indication: PSORIATIC ARTHROPATHY
  2. LOPRESSOR [Concomitant]
     Indication: HYPERTENSION
  3. COZAAR [Concomitant]
     Indication: HYPERTENSION
  4. LOPRESSOR [Concomitant]
     Indication: CORONARY ARTERIAL STENT INSERTION
  5. HUMIRA [Suspect]
     Indication: PSORIATIC ARTHROPATHY
     Dates: start: 20030101

REACTIONS (5)
  - RASH [None]
  - LOCALISED INFECTION [None]
  - OSTEOARTHRITIS [None]
  - BLISTER [None]
  - PSORIASIS [None]
